FAERS Safety Report 7046176-1 (Version None)
Quarter: 2010Q4

REPORT INFORMATION
  Report Type: 
  Country: None (occurrence: None)
  Receive Date: 20101014
  Receipt Date: 20101007
  Transmission Date: 20110411
  Serious: Yes (Hospitalization, Disabling)
  Sender: FDA-Public Use
  Company Number: Z0005965B

PATIENT
  Sex: Female
  Weight: 84 kg

DRUGS (1)
  1. OFATUMUMAB [Suspect]
     Indication: RHEUMATOID ARTHRITIS
     Route: 042
     Dates: start: 20081204, end: 20091130

REACTIONS (2)
  - BLEPHAROSPASM [None]
  - DIPLOPIA [None]
